FAERS Safety Report 23044821 (Version 8)
Quarter: 2024Q2

REPORT INFORMATION
  Report Type: Spontaneous
  Country: US (occurrence: US)
  Receive Date: 20231009
  Receipt Date: 20240607
  Transmission Date: 20240716
  Serious: No
  Sender: FDA-Public Use
  Company Number: US-PFIZER INC-PV202300142056

PATIENT
  Age: 71 Year
  Sex: Male

DRUGS (1)
  1. IBRANCE [Suspect]
     Active Substance: PALBOCICLIB
     Dosage: 125 MG, CYCLIC (SWALLOW WHOLE ONCE A DAY ON DAYS 1-21, OFF 7 DAYS, THEN REPEAT)
     Route: 048

REACTIONS (4)
  - Hypoacusis [Unknown]
  - Daydreaming [Unknown]
  - Stress [Unknown]
  - Confusional state [Unknown]
